FAERS Safety Report 14648104 (Version 2)
Quarter: 2018Q1

REPORT INFORMATION
  Report Type: Spontaneous
  Country: US (occurrence: US)
  Receive Date: 20180316
  Receipt Date: 20180322
  Transmission Date: 20180509
  Serious: Yes (Death)
  Sender: FDA-Public Use
  Company Number: US-JNJFOC-20180320973

PATIENT
  Sex: Female
  Weight: 59 kg

DRUGS (8)
  1. IMBRUVICA [Suspect]
     Active Substance: IBRUTINIB
     Indication: MANTLE CELL LYMPHOMA
     Route: 048
     Dates: start: 20151228
  2. IRON [Concomitant]
     Active Substance: IRON
  3. MULTIVITAMINS [Concomitant]
     Active Substance: VITAMINS
  4. XARELTO [Concomitant]
     Active Substance: RIVAROXABAN
  5. CALCIUM [Concomitant]
     Active Substance: CALCIUM
  6. SYNTHROID [Concomitant]
     Active Substance: LEVOTHYROXINE SODIUM
  7. ADVAIR HFA [Concomitant]
     Active Substance: FLUTICASONE PROPIONATE\SALMETEROL XINAFOATE
  8. TIMOPTIC [Concomitant]
     Active Substance: TIMOLOL MALEATE

REACTIONS (1)
  - Death [Fatal]
